FAERS Safety Report 8786720 (Version 1)
Quarter: 2012Q4

REPORT INFORMATION
  Report Type: Report from Study
  Country: US (occurrence: US)
  Receive Date: 20120914
  Receipt Date: 20120914
  Transmission Date: 20130627
  Serious: No
  Sender: FDA-Public Use
  Company Number: US-VERTEX PHARMACEUTICAL INC.-AE-2012-009449

PATIENT
  Age: 59 Year
  Sex: Male
  Weight: 93.64 kg

DRUGS (5)
  1. INCIVEK [Suspect]
     Indication: HEPATITIS C
     Route: 048
  2. PEGASYS PROCLICK [Concomitant]
     Indication: HEPATITIS C
  3. RIBAVIRIN [Concomitant]
     Indication: HEPATITIS C
  4. NIFEDIPINE [Concomitant]
  5. ADVIL [Concomitant]

REACTIONS (4)
  - Influenza like illness [Unknown]
  - Back pain [Unknown]
  - Diarrhoea [Unknown]
  - Anorectal discomfort [Unknown]
